FAERS Safety Report 5273601-9 (Version None)
Quarter: 2007Q1

REPORT INFORMATION
  Report Type: 
  Country: None (occurrence: None)
  Receive Date: 20061219
  Receipt Date: 20060927
  Transmission Date: 20070707
  Serious: Yes (Other)
  Sender: FDA-Public Use
  Company Number: US-JNJFOC-20060604806

PATIENT
  Age: 40 Year
  Sex: Female
  Weight: 115.6672 kg

DRUGS (14)
  1. ORTHO EVRA [Suspect]
     Indication: DRUG USE FOR UNKNOWN INDICATION
     Dosage: TRANSDERMAL
     Route: 062
     Dates: start: 20040301, end: 20040624
  2. DICYCLOMIN (UNKNOWN) (DICYCLOVERINE HYDROCHLORIDE) [Concomitant]
  3. IBUPROFEN (UNKNOWN) IBUPROFEN [Concomitant]
  4. LISNOPRIL (LISNOPRIL) [Concomitant]
  5. ALBUTEROL (SALBUTAMOL) UNKNOWN [Concomitant]
  6. RHINOCORT (BUDESONIDE) UNKNOWN [Concomitant]
  7. ATROVENT (IPRATROPIUM BROMIDE) UNKNOWN [Concomitant]
  8. FUROSEMIDE [Concomitant]
  9. KLOR-CON (POTASSIUM CHLORIDE) UNKNOWN [Concomitant]
  10. MECLIZINE (MECLOZINE) UNKNOWN [Concomitant]
  11. TRAZODONE (TRAZODONE) UNKNOWN [Concomitant]
  12. DEPAKOTE (VALPROATE SEMISODIUM) UNKNOWN [Concomitant]
  13. BURPOPION (BUPROPION) UNKNOWN [Concomitant]
  14. CELEXA (CITALOPRAM HYDROBROMIDE) UNKNOWN [Concomitant]

REACTIONS (2)
  - DEEP VEIN THROMBOSIS [None]
  - PULMONARY EMBOLISM [None]
